FAERS Safety Report 9435076 (Version 3)
Quarter: 2014Q4

REPORT INFORMATION
  Report Type: Spontaneous
  Country: US (occurrence: US)
  Receive Date: 20130801
  Receipt Date: 20141118
  Transmission Date: 20150529
  Serious: Yes (Hospitalization, Other)
  Sender: FDA-Public Use
  Company Number: US-BAYER-2013-092825

PATIENT
  Age: 23 Year
  Sex: Female
  Weight: 111.11 kg

DRUGS (1)
  1. MIRENA [Suspect]
     Active Substance: LEVONORGESTREL
     Indication: CONTRACEPTION
     Dosage: 20 MCG/24HR, CONT
     Route: 015
     Dates: start: 201205, end: 20130116

REACTIONS (9)
  - Pelvic inflammatory disease [None]
  - Device issue [None]
  - Vaginal infection [None]
  - Pain [None]
  - Uterine perforation [None]
  - Uterine haemorrhage [None]
  - Uterine infection [None]
  - Fungal infection [None]
  - Device difficult to use [None]

NARRATIVE: CASE EVENT DATE: 2012
